FAERS Safety Report 24606437 (Version 1)
Quarter: 2024Q4

REPORT INFORMATION
  Report Type: Spontaneous
  Country: RO (occurrence: RO)
  Receive Date: 20241112
  Receipt Date: 20241112
  Transmission Date: 20250115
  Serious: Yes (Hospitalization, Other)
  Sender: SANDOZ
  Company Number: RO-SANDOZ-SDZ2024RO093268

PATIENT
  Sex: Male

DRUGS (1)
  1. ETANERCEPT [Suspect]
     Active Substance: ETANERCEPT
     Indication: Ankylosing spondylitis
     Dosage: UNK, QW
     Route: 065
     Dates: start: 201801

REACTIONS (2)
  - Amyotrophic lateral sclerosis [Unknown]
  - Overlap syndrome [Unknown]
